FAERS Safety Report 23259320 (Version 1)
Quarter: 2023Q4

REPORT INFORMATION
  Report Type: Other
  Country: MX (occurrence: None)
  Receive Date: 20231204
  Receipt Date: 20231204
  Transmission Date: 20240110
  Serious: Yes (Other)
  Sender: FDA-Public Use
  Company Number: MX-ROCHE-3468623

PATIENT
  Sex: Female
  Weight: 63 kg

DRUGS (2)
  1. OCREVUS [Suspect]
     Active Substance: OCRELIZUMAB
     Indication: Multiple sclerosis
     Route: 042
     Dates: start: 20190606
  2. LUPRON [Concomitant]
     Active Substance: LEUPROLIDE ACETATE
     Indication: Endometriosis

REACTIONS (3)
  - Intestinal obstruction [Recovering/Resolving]
  - Abdominal adhesions [Recovering/Resolving]
  - Solar lentigo [Recovering/Resolving]

NARRATIVE: CASE EVENT DATE: 20220101
